FAERS Safety Report 5609667-3 (Version None)
Quarter: 2008Q1

REPORT INFORMATION
  Report Type: 
  Country: None (occurrence: None)
  Receive Date: 20080131
  Receipt Date: 20080124
  Transmission Date: 20080703
  Serious: Yes (Other)
  Sender: FDA-Public Use
  Company Number: B0503313A

PATIENT
  Age: 10 Year
  Sex: Male
  Weight: 33.3 kg

DRUGS (6)
  1. RELENZA [Suspect]
     Indication: INFLUENZA
     Dosage: 10MG TWICE PER DAY
     Route: 055
     Dates: start: 20080107, end: 20080110
  2. ASVERIN [Concomitant]
     Dosage: .699G PER DAY
     Route: 048
     Dates: start: 20080107, end: 20080110
  3. MUCODYNE [Concomitant]
     Dosage: 2.799G PER DAY
     Route: 048
     Dates: start: 20080107, end: 20080110
  4. TRANSAMIN [Concomitant]
     Dosage: .999G PER DAY
     Route: 048
     Dates: start: 20080107, end: 20080110
  5. CALONAL [Concomitant]
     Route: 048
     Dates: start: 20080107, end: 20080108
  6. HOKUNALIN [Concomitant]
     Dosage: 1MG PER DAY
     Route: 062
     Dates: start: 20080107, end: 20080110

REACTIONS (5)
  - ABNORMAL BEHAVIOUR [None]
  - COUGH [None]
  - CRYING [None]
  - PANIC REACTION [None]
  - SCREAMING [None]
